FAERS Safety Report 25458102 (Version 1)
Quarter: 2025Q2

REPORT INFORMATION
  Report Type: Spontaneous
  Country: US (occurrence: US)
  Receive Date: 20250620
  Receipt Date: 20250620
  Transmission Date: 20250717
  Serious: Yes (Other)
  Sender: TOLMAR
  Company Number: US-Tolmar-TLM-2025-03698

PATIENT
  Age: 46 Year

DRUGS (1)
  1. TESTOSTERONE UNDECANOATE [Suspect]
     Active Substance: TESTOSTERONE UNDECANOATE
     Indication: Gender reassignment therapy
     Route: 065
     Dates: start: 2001

REACTIONS (3)
  - Cystadenocarcinoma ovary [Unknown]
  - Fallopian tube cancer [Unknown]
  - Off label use [Unknown]
